FAERS Safety Report 24036039 (Version 2)
Quarter: 2024Q3

REPORT INFORMATION
  Report Type: Report from Study
  Country: FR (occurrence: FR)
  Receive Date: 20240701
  Receipt Date: 20240709
  Transmission Date: 20241017
  Serious: No
  Sender: ABBVIE
  Company Number: FR-ABBVIE-5815553

PATIENT
  Age: 37 Year
  Sex: Female
  Weight: 93 kg

DRUGS (7)
  1. UPADACITINIB [Suspect]
     Active Substance: UPADACITINIB
     Indication: Dermatitis atopic
     Route: 048
     Dates: start: 20240220
  2. ACETAMINOPHEN [Concomitant]
     Active Substance: ACETAMINOPHEN
     Indication: Lung disorder
     Route: 048
     Dates: start: 20240412, end: 20240502
  3. OXAZEPAM [Concomitant]
     Active Substance: OXAZEPAM
     Indication: Product used for unknown indication
  4. AMOXICILLIN [Concomitant]
     Active Substance: AMOXICILLIN
     Indication: Lung disorder
     Dosage: TIME INTERVAL: 0.33333333 DAYS
     Route: 048
     Dates: start: 20240412, end: 20240418
  5. CLARITHROMYCIN [Concomitant]
     Active Substance: CLARITHROMYCIN
     Indication: Bronchitis
     Dates: start: 20240411, end: 20240412
  6. TACROLIMUS [Concomitant]
     Active Substance: TACROLIMUS
     Indication: Dermatitis atopic
     Dosage: ESTIMATED DOSE: 3 GRAM/MONTH
     Route: 061
     Dates: start: 20200101
  7. PREDNISOLONE [Concomitant]
     Active Substance: PREDNISOLONE
     Indication: Bronchitis
     Dates: start: 20240411, end: 20240412

REACTIONS (2)
  - Lung disorder [Recovered/Resolved]
  - Bronchitis [Recovered/Resolved]

NARRATIVE: CASE EVENT DATE: 20240412
